FAERS Safety Report 9145275 (Version 1)
Quarter: 2013Q1

REPORT INFORMATION
  Report Type: Spontaneous
  Country: US (occurrence: None)
  Receive Date: 20130226
  Receipt Date: 20130226
  Transmission Date: 20140127
  Serious: No
  Sender: FDA-Public Use
  Company Number: None

PATIENT
  Sex: Male
  Weight: 114 kg

DRUGS (1)
  1. SAPHRIS [Suspect]
     Indication: SCHIZOPHRENIA
     Dates: start: 20120918, end: 20121221

REACTIONS (3)
  - Electrocardiogram QT prolonged [None]
  - Left ventricular hypertrophy [None]
  - Bifascicular block [None]
